FAERS Safety Report 4415272-7 (Version None)
Quarter: 2004Q3

REPORT INFORMATION
  Report Type: 
  Country: None (occurrence: None)
  Receive Date: 20040730
  Receipt Date: 20040715
  Transmission Date: 20050211
  Serious: Yes (Other)
  Sender: FDA-Public Use
  Company Number: A03200402325

PATIENT
  Age: 74 Year
  Sex: Male

DRUGS (1)
  1. LEUPROLIDE ACETATE [Suspect]
     Indication: PROSTATE CANCER
     Dosage: 22.5 MG Q3W - SUBCUTANEOUS
     Route: 058
     Dates: start: 20040329, end: 20040329

REACTIONS (3)
  - INJECTION SITE ABSCESS [None]
  - NECROSIS [None]
  - SECRETION DISCHARGE [None]
